APPROVED DRUG PRODUCT: AGENERASE
Active Ingredient: AMPRENAVIR
Strength: 50MG
Dosage Form/Route: CAPSULE;ORAL
Application: N021007 | Product #001
Applicant: GLAXOSMITHKLINE
Approved: Apr 15, 1999 | RLD: No | RS: No | Type: DISCN